FAERS Safety Report 15384898 (Version 1)
Quarter: 2018Q3

REPORT INFORMATION
  Report Type: Spontaneous
  Country: US (occurrence: US)
  Receive Date: 20180906
  Receipt Date: 20180906
  Transmission Date: 20181010
  Serious: No
  Sender: FDA-Public Use
  Company Number: None

PATIENT
  Age: 72 Year
  Sex: Female

DRUGS (1)
  1. IBRANCE [Suspect]
     Active Substance: PALBOCICLIB
     Dates: start: 201803, end: 201804

REACTIONS (7)
  - Oral pain [None]
  - Alopecia [None]
  - Weight decreased [None]
  - Drug intolerance [None]
  - Fatigue [None]
  - Oesophageal pain [None]
  - Therapy change [None]

NARRATIVE: CASE EVENT DATE: 20180906
